FAERS Safety Report 25231029 (Version 1)
Quarter: 2025Q2

REPORT INFORMATION
  Report Type: Spontaneous
  Country: US (occurrence: None)
  Receive Date: 20250423
  Receipt Date: 20250423
  Transmission Date: 20250717
  Serious: Yes (Life-Threatening, Hospitalization)
  Sender: FDA-CTU
  Company Number: None

PATIENT
  Age: 48 Year
  Sex: Female
  Weight: 96.75 kg

DRUGS (11)
  1. VRAYLAR [Suspect]
     Active Substance: CARIPRAZINE
     Indication: Psychotic disorder
     Dosage: OTHER QUANTITY : 30 CAPSULE(S);?FREQUENCY : DAILY;?
     Route: 048
     Dates: start: 20250303, end: 20250318
  2. SEROQUEL XR [Suspect]
     Active Substance: QUETIAPINE FUMARATE
  3. LEXAPRO [Concomitant]
     Active Substance: ESCITALOPRAM OXALATE
  4. SYNTHROID [Concomitant]
     Active Substance: LEVOTHYROXINE SODIUM
  5. INDERAL [Concomitant]
     Active Substance: PROPRANOLOL HYDROCHLORIDE
  6. XANAX [Concomitant]
     Active Substance: ALPRAZOLAM
  7. PANTOPRAZOLE [Concomitant]
     Active Substance: PANTOPRAZOLE
  8. DEPAKOTE [Concomitant]
     Active Substance: DIVALPROEX SODIUM
  9. LITHIUM [Concomitant]
     Active Substance: LITHIUM
  10. SKYRIZI [Concomitant]
     Active Substance: RISANKIZUMAB-RZAA
  11. Maxivision [Concomitant]

REACTIONS (9)
  - Movement disorder [None]
  - Musculoskeletal stiffness [None]
  - Dysphagia [None]
  - Therapy change [None]
  - Bedridden [None]
  - Pneumonia [None]
  - Aspiration [None]
  - Drug eruption [None]
  - Therapy cessation [None]

NARRATIVE: CASE EVENT DATE: 20250418
